FAERS Safety Report 21087233 (Version 1)
Quarter: 2022Q3

REPORT INFORMATION
  Report Type: Spontaneous
  Country: US (occurrence: US)
  Receive Date: 20220715
  Receipt Date: 20220715
  Transmission Date: 20221026
  Serious: Yes (Other)
  Sender: FDA-Public Use
  Company Number: US-MYLANLABS-2022M1077703

PATIENT
  Age: 67 Year
  Sex: Female

DRUGS (4)
  1. TRIAMCINOLONE [Suspect]
     Active Substance: TRIAMCINOLONE
     Indication: Cystoid macular oedema
     Dosage: THE PATIENT RECEIVED TREATMENT WITH INJECTION OF SUB-TENON TRIAMCINOLONE, SUBTENON
     Route: 065
  2. BEVACIZUMAB [Suspect]
     Active Substance: BEVACIZUMAB
     Indication: Cystoid macular oedema
     Dosage: UNK, MONTHLY, SHE RECEIVED THREE INJECTIONS OF INTRAVITREAL BEVACIZUMAB MONTHLY
  3. IODINE (125 I) [Concomitant]
     Indication: Choroid melanoma
     Dosage: SHE UNDERWENT IODINE-125 PBT TREATMENT AND RECEIVED TOTAL RADIATION DOSE OF 85GY TO THE DEPTH OF 4.2
     Route: 065
  4. BROLUCIZUMAB [Concomitant]
     Active Substance: BROLUCIZUMAB
     Indication: Radiation retinopathy
     Dosage: 6 MILLIGRAM, THE PATIENT RECEIVED INTRAVITREAL INJECTION OF 6MG IN 0.05CC OF BROLUCIZUMAB

REACTIONS (1)
  - Drug ineffective [Unknown]
